FAERS Safety Report 18927268 (Version 1)
Quarter: 2021Q1

REPORT INFORMATION
  Report Type: Spontaneous
  Country: US (occurrence: US)
  Receive Date: 20210222
  Receipt Date: 20210222
  Transmission Date: 20210420
  Serious: Yes (Death)
  Sender: FDA-Public Use
  Company Number: None

PATIENT
  Sex: Female

DRUGS (3)
  1. OXYBUTYNIN, VENLAFAXINE, ATORVASTATIN, SUMATRIPTAN [Concomitant]
  2. BOTOX [Suspect]
     Active Substance: ONABOTULINUMTOXINA
     Indication: MIGRAINE
     Dosage: ?          OTHER FREQUENCY:EVERY THREE MONTHS;?
     Route: 058
     Dates: start: 20170117
  3. AIMOVIG, VALSARTAN HCTZ, VERAPAMIL, PANTOPRAZOLE, TOPIRAMATE [Concomitant]

REACTIONS (1)
  - Death [None]
